FAERS Safety Report 9669780 (Version 1)
Quarter: 2013Q4

REPORT INFORMATION
  Report Type: Spontaneous
  Country: NL (occurrence: NL)
  Receive Date: 20131105
  Receipt Date: 20131105
  Transmission Date: 20140711
  Serious: Yes (Hospitalization)
  Sender: FDA-Public Use
  Company Number: NL-PFIZER INC-2013314360

PATIENT
  Age: 67 Year
  Sex: Male

DRUGS (6)
  1. AMIODARONE HCL [Suspect]
     Indication: SUPRAVENTRICULAR TACHYCARDIA
     Dosage: 200 MG, 1X/DAY
     Route: 048
  2. MSC1936369B [Suspect]
     Indication: MALIGNANT MELANOMA
     Dosage: 60 MG, 2X/DAY
     Route: 048
     Dates: start: 20130820, end: 20131021
  3. OXCARBAZEPINE [Concomitant]
     Indication: EPILEPSY
     Dosage: UNK
  4. APROVEL [Concomitant]
     Indication: HYPERTENSION
     Dosage: UNK
  5. AMLODIPINE [Concomitant]
     Indication: HYPERTENSION
     Dosage: UNK
  6. PREDNISOLON [Concomitant]
     Indication: SKIN TOXICITY
     Dosage: UNK
     Dates: start: 20131022, end: 20131022

REACTIONS (2)
  - Pyrexia [Not Recovered/Not Resolved]
  - Chills [Not Recovered/Not Resolved]
